FAERS Safety Report 13879125 (Version 10)
Quarter: 2018Q4

REPORT INFORMATION
  Report Type: Report from Study
  Country: GB (occurrence: GB)
  Receive Date: 20170817
  Receipt Date: 20181122
  Transmission Date: 20190204
  Serious: Yes (Other)
  Sender: FDA-Public Use
  Company Number: GB-BRISTOL-MYERS SQUIBB COMPANY-BMS-2017-072693

PATIENT
  Sex: Female

DRUGS (1)
  1. ABATACEPT [Suspect]
     Active Substance: ABATACEPT
     Indication: RHEUMATOID ARTHRITIS
     Dosage: 125 MG, QWK
     Route: 058
     Dates: start: 20170807

REACTIONS (10)
  - Cough [Unknown]
  - Skin infection [Unknown]
  - Viral infection [Unknown]
  - Device malfunction [Unknown]
  - Pain [Unknown]
  - Nasopharyngitis [Unknown]
  - Rash [Unknown]
  - Lower respiratory tract infection [Unknown]
  - Drug ineffective [Unknown]
  - Ear infection [Unknown]

NARRATIVE: CASE EVENT DATE: 2018
